FAERS Safety Report 9478276 (Version 1)
Quarter: 2013Q3

REPORT INFORMATION
  Report Type: Spontaneous
  Country: FR (occurrence: FR)
  Receive Date: 20130827
  Receipt Date: 20130827
  Transmission Date: 20140515
  Serious: Yes (Other)
  Sender: FDA-Public Use
  Company Number: FR-GE HEALTHCARE MEDICAL DIAGNOSTICS-OMPQ-PR-1308S-1038

PATIENT
  Age: 60 Year
  Sex: Male

DRUGS (8)
  1. OMNIPAQUE [Suspect]
     Indication: PRODUCT USED FOR UNKNOWN INDICATION
     Dosage: DOSE NOT REPORTED
     Route: 042
     Dates: start: 20130710, end: 20130710
  2. OMNIPAQUE [Suspect]
     Indication: DIAGNOSTIC PROCEDURE
  3. ALIMTA [Suspect]
     Route: 042
     Dates: start: 20130712, end: 20130712
  4. GRANOCYTE [Suspect]
     Dates: start: 20130715, end: 20130715
  5. SPECIAFOLDINE [Concomitant]
  6. INEXIUM [Concomitant]
  7. INNOHEP [Concomitant]
  8. PRIMPERAN [Concomitant]

REACTIONS (1)
  - Dermatitis bullous [Recovered/Resolved]
